FAERS Safety Report 13609783 (Version 1)
Quarter: 2017Q2

REPORT INFORMATION
  Report Type: Spontaneous
  Country: US (occurrence: US)
  Receive Date: 20170602
  Receipt Date: 20170602
  Transmission Date: 20170830
  Serious: Yes (Death, Life-Threatening, Hospitalization)
  Sender: FDA-Public Use
  Company Number: US-PFIZER INC-3081771

PATIENT
  Age: 81 Year
  Sex: Male
  Weight: 77.1 kg

DRUGS (17)
  1. VITAMINC /00008001/ [Concomitant]
     Indication: SUPPLEMENTATION THERAPY
     Dosage: UNK
     Dates: start: 20140725
  2. FLUCONAZOLE. [Concomitant]
     Active Substance: FLUCONAZOLE
     Indication: ANTIFUNGAL PROPHYLAXIS
     Dosage: UNK
     Dates: start: 20151009
  3. INVESTIGATIONAL DRUG [Suspect]
     Active Substance: INVESTIGATIONAL PRODUCT
     Indication: REFRACTORY ANAEMIA WITH AN EXCESS OF BLASTS
     Dosage: 100 MG, FREQ: 1 DAY; INTERVAL: 1
     Route: 048
     Dates: start: 20151007
  4. INDOMETACIN [Concomitant]
     Active Substance: INDOMETHACIN
     Indication: GOUT
     Dosage: FREQ: AS NEEDED
     Dates: start: 20050101
  5. MULTIVITAMIN /00097801/ [Concomitant]
     Active Substance: VITAMINS
     Dosage: UNK
     Dates: start: 20050101
  6. TAMSULOSIN [Concomitant]
     Active Substance: TAMSULOSIN
     Indication: POLLAKIURIA
     Dosage: UNK
     Dates: start: 20130107
  7. VARDENAFIL [Concomitant]
     Active Substance: VARDENAFIL
     Indication: ERECTILE DYSFUNCTION
     Dosage: UNK
     Dates: start: 20140227
  8. BENAZEPRIL [Concomitant]
     Active Substance: BENAZEPRIL HYDROCHLORIDE
     Indication: HYPERTENSION
     Dosage: UNK
     Dates: start: 20090219
  9. DAPTOMYCIN. [Concomitant]
     Active Substance: DAPTOMYCIN
     Indication: LOCALISED INFECTION
     Dosage: UNK
     Dates: start: 20151026
  10. RANITIDINE. [Concomitant]
     Active Substance: RANITIDINE
     Indication: GASTROOESOPHAGEAL REFLUX DISEASE
     Dosage: UNK
     Dates: start: 20060101
  11. GLUCOSAMINE +CHONDROITIN/01430901/ [Concomitant]
     Indication: SUPPLEMENTATION THERAPY
     Dosage: UNK
     Dates: start: 20050101
  12. ALBUTEROL/00139501/ [Concomitant]
     Indication: ASTHMA
     Dosage: UNK
     Dates: start: 20110627
  13. CIPROFLOXACIN. [Concomitant]
     Active Substance: CIPROFLOXACIN
     Indication: ANTIBIOTIC PROPHYLAXIS
     Dosage: UNK
     Dates: start: 20110901
  14. ACICLOVIR/00587301/ [Concomitant]
     Indication: ANTIVIRAL PROPHYLAXIS
     Dosage: UNK
     Dates: start: 20150911
  15. NIACIN. [Concomitant]
     Active Substance: NIACIN
     Indication: CORONARY ARTERY DISEASE
     Dosage: UNK
     Dates: start: 20090219
  16. VITAMIND /00107901/ [Concomitant]
     Indication: SUPPLEMENTATION THERAPY
     Dosage: UNK
     Dates: start: 20140725
  17. CYTARABINE. [Suspect]
     Active Substance: CYTARABINE
     Indication: REFRACTORY ANAEMIA WITH AN EXCESS OF BLASTS
     Dosage: 20 MG, TWICE DAILY ON DAYS 1-10 OF EACH2 8-DAY CYCLE, FREQ: CYCLICAL
     Route: 058
     Dates: start: 20151007, end: 20151016

REACTIONS (3)
  - Acute myeloid leukaemia [Fatal]
  - Disease progression [Fatal]
  - Pneumonia [Fatal]

NARRATIVE: CASE EVENT DATE: 20151104
